FAERS Safety Report 24058826 (Version 2)
Quarter: 2024Q3

REPORT INFORMATION
  Report Type: Spontaneous
  Country: IE (occurrence: IE)
  Receive Date: 20240708
  Receipt Date: 20240723
  Transmission Date: 20241017
  Serious: Yes (Other)
  Sender: AUROBINDO
  Company Number: IE-002147023-PHHY2018IE008708

PATIENT
  Sex: Female
  Weight: 1.5 kg

DRUGS (14)
  1. ALPRAZOLAM [Suspect]
     Active Substance: ALPRAZOLAM
     Indication: Product used for unknown indication
     Dosage: 250 MILLIGRAM, TWO TIMES A DAY
     Route: 064
  2. EPINEPHRINE [Suspect]
     Active Substance: EPINEPHRINE
     Indication: Product used for unknown indication
     Dosage: UNK, MATERNAL DOSE: 15 ML
     Route: 064
  3. OMEPRAZOLE [Suspect]
     Active Substance: OMEPRAZOLE
     Indication: Product used for unknown indication
     Dosage: 20 MILLIGRAM, DAILY
     Route: 064
  4. RANITIDINE [Suspect]
     Active Substance: RANITIDINE
     Indication: Product used for unknown indication
     Dosage: UNK, MATERNAL DOSE: 150 MG
     Route: 064
  5. ACETAMINOPHEN [Suspect]
     Active Substance: ACETAMINOPHEN
     Indication: Product used for unknown indication
     Dosage: UNK
     Route: 064
  6. PROPOFOL [Suspect]
     Active Substance: PROPOFOL
     Indication: Product used for unknown indication
     Dosage: UNK, MATERNAL DOSE: 180 MG
     Route: 064
  7. PROPOFOL [Suspect]
     Active Substance: PROPOFOL
     Dosage: UNK,MATERNAL DOSE: 4-6 UG/ML
     Route: 064
  8. LIDOCAINE [Suspect]
     Active Substance: LIDOCAINE
     Indication: Product used for unknown indication
     Dosage: UNK (2 %)
     Route: 064
  9. ROCURONIUM [Suspect]
     Active Substance: ROCURONIUM BROMIDE
     Indication: Product used for unknown indication
     Dosage: UNK, MATERNAL DOSE: 1 MG/KG
     Route: 064
  10. SODIUM CITRATE [Suspect]
     Active Substance: SODIUM CITRATE
     Indication: Product used for unknown indication
     Dosage: UNK (MATERNAL DOSE: 30 ML)
     Route: 064
  11. DEXMEDETOMIDINE [Suspect]
     Active Substance: DEXMEDETOMIDINE
     Indication: Product used for unknown indication
     Dosage: UNK, MATERNAL DOSE: 0.8 UG/KG OVER 10 MINUTES
     Route: 064
  12. DICLOFENAC [Suspect]
     Active Substance: DICLOFENAC
     Indication: Product used for unknown indication
     Dosage: UNK
     Route: 064
  13. LEVOBUPIVACAINE [Suspect]
     Active Substance: LEVOBUPIVACAINE
     Indication: Product used for unknown indication
     Dosage: UNK, MATERNAL DOSE: 30 ML (0.25% (15 ML))
     Route: 064
  14. OXYGEN [Suspect]
     Active Substance: OXYGEN
     Indication: Product used for unknown indication
     Dosage: MATERNAL DOSE: 50 L/MIN, 15 L/MIN
     Route: 064

REACTIONS (6)
  - Foetal exposure during pregnancy [Recovered/Resolved]
  - Premature baby [Unknown]
  - Exposure during pregnancy [Unknown]
  - Low birth weight baby [Unknown]
  - Apgar score low [Unknown]
  - Live birth [Unknown]
